FAERS Safety Report 6376668-X (Version None)
Quarter: 2009Q3

REPORT INFORMATION
  Report Type: 
  Country: None (occurrence: None)
  Receive Date: 20090921
  Receipt Date: 20090909
  Transmission Date: 20100115
  Serious: Yes (Hospitalization)
  Sender: FDA-Public Use
  Company Number: WAES 0908FRA00034

PATIENT
  Age: 65 Year
  Sex: Male

DRUGS (4)
  1. CAP VORINOSTAT [Suspect]
     Indication: MYELODYSPLASTIC SYNDROME
     Dosage: 400 MG/DAILY
     Route: 048
     Dates: start: 20090622, end: 20090701
  2. CAP VORINOSTAT [Suspect]
     Indication: MYELODYSPLASTIC SYNDROME
     Dosage: 400 MG/DAILY
     Route: 048
     Dates: start: 20090720, end: 20090730
  3. CYTARABINE [Suspect]
     Indication: MYELODYSPLASTIC SYNDROME
     Dosage: 16.6 MG/DAILY
     Route: 058
     Dates: start: 20090622, end: 20090705
  4. CYTARABINE [Suspect]
     Indication: MYELODYSPLASTIC SYNDROME
     Dosage: 16.6 MG/DAILY
     Route: 058
     Dates: start: 20090720, end: 20090730

REACTIONS (5)
  - CENTRAL LINE INFECTION [None]
  - HAEMOGLOBIN DECREASED [None]
  - PLATELET COUNT DECREASED [None]
  - STAPHYLOCOCCAL INFECTION [None]
  - WHITE BLOOD CELL COUNT DECREASED [None]
